FAERS Safety Report 17545566 (Version 1)
Quarter: 2020Q1

REPORT INFORMATION
  Report Type: Spontaneous
  Country: GB (occurrence: GB)
  Receive Date: 20200316
  Receipt Date: 20200316
  Transmission Date: 20200409
  Serious: Yes (Hospitalization)
  Sender: FDA-Public Use
  Company Number: GB-MYLANLABS-2020M1027027

PATIENT
  Age: 44 Year
  Sex: Female
  Weight: 88 kg

DRUGS (3)
  1. COLECALCIFEROL [Concomitant]
     Active Substance: CHOLECALCIFEROL
     Dosage: 40000 INTERNATIONAL UNIT, QW
     Dates: start: 20200113, end: 20200127
  2. CLOZARIL [Suspect]
     Active Substance: CLOZAPINE
     Indication: PRODUCT USED FOR UNKNOWN INDICATION
     Dosage: UNK
     Route: 048
     Dates: start: 20191223, end: 20200104
  3. ARIPIPRAZOLE. [Concomitant]
     Active Substance: ARIPIPRAZOLE
     Dosage: 1 DOSAGE FORM, QD
     Dates: start: 20180911

REACTIONS (11)
  - Tachycardia [Unknown]
  - Myocarditis [Recovering/Resolving]
  - Hyperhidrosis [Unknown]
  - C-reactive protein increased [Unknown]
  - Troponin T increased [Unknown]
  - Nausea [Unknown]
  - Palpitations [Unknown]
  - Influenza like illness [Unknown]
  - Pyrexia [Recovered/Resolved]
  - Pericardial effusion [Recovering/Resolving]
  - Muscle spasms [Unknown]

NARRATIVE: CASE EVENT DATE: 20200105
